FAERS Safety Report 7236356-4 (Version None)
Quarter: 2011Q1

REPORT INFORMATION
  Report Type: 
  Country: None (occurrence: None)
  Receive Date: 20110120
  Receipt Date: 20110107
  Transmission Date: 20110831
  Serious: Yes (Other)
  Sender: FDA-Public Use
  Company Number: PHHY2011IT03543

PATIENT
  Sex: Female

DRUGS (1)
  1. IBUPROFEN [Suspect]

REACTIONS (1)
  - ERYTHEMA NODOSUM [None]
